FAERS Safety Report 5025096-8 (Version None)
Quarter: 2006Q2

REPORT INFORMATION
  Report Type: 
  Country: None (occurrence: None)
  Receive Date: 20060613
  Receipt Date: 20060531
  Transmission Date: 20061013
  Serious: Yes (Hospitalization)
  Sender: FDA-Public Use
  Company Number: AU-AMGEN-US181559

PATIENT
  Sex: Female

DRUGS (5)
  1. NEULASTA [Suspect]
     Indication: CHEMOTHERAPY
     Route: 065
     Dates: start: 20060310, end: 20060310
  2. PACLITAXEL [Suspect]
     Route: 042
     Dates: start: 20060309, end: 20060309
  3. DEXAMETHASONE TAB [Concomitant]
     Route: 065
     Dates: start: 20060309, end: 20060309
  4. TROPISETRON HYDROCHLORIDE [Concomitant]
     Route: 065
     Dates: start: 20060309, end: 20060311
  5. METOCLOPRAMIDE HYDROCHLORIDE [Concomitant]
     Route: 065
     Dates: start: 20060309

REACTIONS (2)
  - NEUROPATHY PERIPHERAL [None]
  - PELVIC PAIN [None]
